FAERS Safety Report 19363734 (Version 2)
Quarter: 2021Q3

REPORT INFORMATION
  Report Type: Spontaneous
  Country: US (occurrence: US)
  Receive Date: 20210603
  Receipt Date: 20210716
  Transmission Date: 20211014
  Serious: Yes (Other)
  Sender: FDA-Public Use
  Company Number: US-TEVA-2021-US-1918444

PATIENT
  Sex: Female

DRUGS (2)
  1. DEXTROAMPHET SACCHARAT, AMPHET ASPARTATE, DEXTROAMPHET SULFATE AND AMPHET SULFAT [Suspect]
     Active Substance: AMPHETAMINE ASPARTATE\AMPHETAMINE SULFATE\DEXTROAMPHETAMINE SACCHARATE\DEXTROAMPHETAMINE SULFATE
     Dosage: 40 MILLIGRAM DAILY;
     Route: 065
     Dates: start: 202105
  2. DEXTROAMPHET SACCHARAT, AMPHET ASPARTATE, DEXTROAMPHET SULFATE AND AMPHET SULFAT [Suspect]
     Active Substance: AMPHETAMINE ASPARTATE\AMPHETAMINE SULFATE\DEXTROAMPHETAMINE SACCHARATE\DEXTROAMPHETAMINE SULFATE
     Indication: ATTENTION DEFICIT HYPERACTIVITY DISORDER
     Dosage: 40 MILLIGRAM DAILY;
     Route: 065
     Dates: start: 2011

REACTIONS (12)
  - Hallucination [Unknown]
  - Memory impairment [Unknown]
  - Product size issue [Unknown]
  - Product quality issue [Unknown]
  - Fatigue [Unknown]
  - Impaired work ability [Unknown]
  - Drug ineffective [Unknown]
  - Product colour issue [Unknown]
  - Suspected counterfeit product [Unknown]
  - Somnolence [Unknown]
  - Diplopia [Unknown]
  - Drug intolerance [Unknown]

NARRATIVE: CASE EVENT DATE: 202105
